FAERS Safety Report 11156865 (Version 1)
Quarter: 2015Q2

REPORT INFORMATION
  Report Type: Spontaneous
  Country: US (occurrence: US)
  Receive Date: 20150602
  Receipt Date: 20150602
  Transmission Date: 20150821
  Serious: Yes (Hospitalization)
  Sender: FDA-Public Use
  Company Number: PHEH2015US010473

PATIENT
  Age: 89 Year
  Sex: Female
  Weight: 40.82 kg

DRUGS (1)
  1. EXELON PATCH [Suspect]
     Active Substance: RIVASTIGMINE
     Indication: DEMENTIA
     Dosage: UNK UNK, QD
     Route: 062
     Dates: start: 20150517

REACTIONS (3)
  - Communication disorder [Not Recovered/Not Resolved]
  - Incorrect drug administration duration [Unknown]
  - Choking [Unknown]

NARRATIVE: CASE EVENT DATE: 20150517
